FAERS Safety Report 7067856-8 (Version None)
Quarter: 2010Q4

REPORT INFORMATION
  Report Type: 
  Country: None (occurrence: None)
  Receive Date: 20101028
  Receipt Date: 20101015
  Transmission Date: 20110411
  Serious: Yes (Hospitalization, Other)
  Sender: FDA-Public Use
  Company Number: JP-PFIZER INC-2010124508

PATIENT
  Age: 87 Year
  Sex: Female
  Weight: 48 kg

DRUGS (11)
  1. CELECOX [Suspect]
     Indication: RHEUMATOID ARTHRITIS
     Dosage: 100 MG, 2X/DAY
     Route: 048
     Dates: end: 20100913
  2. RHEUMATREX [Suspect]
     Indication: RHEUMATOID ARTHRITIS
     Dosage: 4 MG, WEEKLY
     Route: 048
     Dates: end: 20100907
  3. PREDNISOLONE [Suspect]
     Indication: RHEUMATOID ARTHRITIS
     Dosage: 5 MG, 1X/DAY
     Route: 048
     Dates: end: 20100916
  4. TAKEPRON [Concomitant]
     Dosage: UNK
  5. TAKEPRON [Concomitant]
     Dosage: UNK
     Dates: start: 20100529
  6. OMEPRAL [Concomitant]
     Dosage: UNK
     Route: 042
     Dates: start: 20100521, end: 20100529
  7. ADONA [Concomitant]
     Dosage: UNK
     Route: 048
     Dates: start: 20100521, end: 20100529
  8. TRANEXAMIC ACID [Concomitant]
     Dosage: UNK
     Route: 048
     Dates: start: 20100521, end: 20100529
  9. PROMAC /JPN/ [Concomitant]
     Dosage: UNK
     Dates: start: 20100529
  10. ALLOID [Concomitant]
     Dosage: UNK
     Dates: start: 20100529
  11. ALUMINIUM HYDROXIDE W/ MAGNESIUM HYDROXIDE [Concomitant]
     Dosage: UNK
     Dates: start: 20100529

REACTIONS (6)
  - CARDIAC FAILURE [None]
  - GASTRIC PERFORATION [None]
  - GASTRIC ULCER HAEMORRHAGE [None]
  - GASTROENTERITIS [None]
  - RENAL IMPAIRMENT [None]
  - WHITE BLOOD CELL COUNT DECREASED [None]
